FAERS Safety Report 11307892 (Version 1)
Quarter: 2015Q3

REPORT INFORMATION
  Report Type: Spontaneous
  Country: FR (occurrence: FR)
  Receive Date: 20150724
  Receipt Date: 20150724
  Transmission Date: 20151125
  Serious: Yes (Hospitalization)
  Sender: FDA-Public Use
  Company Number: FR-ASTRAZENECA-2015SE70298

PATIENT
  Age: 3858 Week
  Sex: Female

DRUGS (2)
  1. BRILIQUE [Suspect]
     Active Substance: TICAGRELOR
     Indication: STENT PLACEMENT
     Route: 048
     Dates: start: 20150504
  2. BRILIQUE [Suspect]
     Active Substance: TICAGRELOR
     Indication: MYOCARDIAL INFARCTION
     Route: 048
     Dates: start: 20150504

REACTIONS (3)
  - Agitation [Recovering/Resolving]
  - Fall [Unknown]
  - Anxiety [Recovering/Resolving]

NARRATIVE: CASE EVENT DATE: 20150604
